FAERS Safety Report 5376193-9 (Version None)
Quarter: 2007Q3

REPORT INFORMATION
  Report Type: 
  Country: None (occurrence: None)
  Receive Date: 20070702
  Receipt Date: 20070621
  Transmission Date: 20080115
  Serious: Yes (Other)
  Sender: FDA-Public Use
  Company Number: HQWYE773225JUN07

PATIENT
  Sex: Female
  Weight: 83.54 kg

DRUGS (1)
  1. TYGACIL [Suspect]
     Indication: BACTERAEMIA
     Dosage: 50 MG EVERY 12 HOURS
     Route: 042
     Dates: start: 20070620

REACTIONS (2)
  - CONDITION AGGRAVATED [None]
  - PANCYTOPENIA [None]
